FAERS Safety Report 15751655 (Version 1)
Quarter: 2018Q4

REPORT INFORMATION
  Report Type: Spontaneous
  Country: US (occurrence: CA)
  Receive Date: 20181221
  Receipt Date: 20181221
  Transmission Date: 20190205
  Serious: Yes (Hospitalization)
  Sender: FDA-Public Use
  Company Number: US-BAYER-2018-240082

PATIENT
  Age: 37 Year
  Sex: Female

DRUGS (1)
  1. MIRENA [Suspect]
     Active Substance: LEVONORGESTREL
     Indication: CONTRACEPTION
     Dosage: 20 MCG/24HR, CONT
     Route: 015

REACTIONS (8)
  - Anxiety [Recovered/Resolved]
  - Psychotic disorder [Recovered/Resolved]
  - Depressive symptom [Recovered/Resolved]
  - Hypertrichosis [Recovered/Resolved]
  - Abdominal distension [Recovered/Resolved]
  - Fatigue [Recovered/Resolved]
  - Alopecia [Recovered/Resolved]
  - Weight increased [Recovered/Resolved]
